FAERS Safety Report 6582988-6 (Version None)
Quarter: 2010Q1

REPORT INFORMATION
  Report Type: 
  Country: None (occurrence: None)
  Receive Date: 20100216
  Receipt Date: 20100205
  Transmission Date: 20100710
  Serious: Yes (Life-Threatening, Other)
  Sender: FDA-Public Use
  Company Number: JP-WYE-H12869610

PATIENT
  Age: 73 Year
  Sex: Male
  Weight: 61 kg

DRUGS (2)
  1. ANCARON [Suspect]
     Indication: VENTRICULAR FIBRILLATION
     Dosage: VARIABLE DOSE, ^INCREASED AND DECREASED BECAUSE THE PATIENT FREQUENTLY DEVELOPED VT^
     Route: 048
     Dates: start: 19940404, end: 20031219
  2. ANCARON [Suspect]
     Indication: VENTRICULAR TACHYCARDIA

REACTIONS (3)
  - DRUG EFFECT DECREASED [None]
  - HYPERTHYROIDISM [None]
  - PULMONARY FIBROSIS [None]
